FAERS Safety Report 8964539 (Version 1)
Quarter: 2012Q4

REPORT INFORMATION
  Report Type: 
  Country: GB (occurrence: GB)
  Receive Date: 20121213
  Receipt Date: 20121213
  Transmission Date: 20130627
  Serious: Yes (Other)
  Sender: FDA-Public Use
  Company Number: PHHY2012GB114462

PATIENT
  Age: 63 Year
  Sex: Male
  Weight: 110 kg

DRUGS (5)
  1. AMLODIPINE [Suspect]
     Indication: HYPERTENSION
     Dosage: 5 mg, UNK
     Route: 048
     Dates: start: 2010, end: 2012
  2. RITONAVIR [Interacting]
     Indication: RETROVIRAL INFECTION
     Dosage: 200 mg, UNK
     Route: 048
     Dates: start: 201009
  3. BENDROFLUMETHIAZIDE [Concomitant]
     Indication: HYPERTENSION
     Dosage: 2.5 mg, UNK
     Route: 048
     Dates: start: 2012
  4. DARUNAVIR [Concomitant]
     Indication: RETROVIRAL INFECTION
     Dosage: 800 mg, UNK
     Route: 048
     Dates: start: 201209
  5. TRUVADA [Concomitant]
     Indication: RETROVIRAL INFECTION
     Dosage: 1 DF, QD
     Route: 048
     Dates: start: 201209

REACTIONS (4)
  - Generalised oedema [Recovering/Resolving]
  - Dyspnoea [Recovering/Resolving]
  - Malaise [Unknown]
  - Drug interaction [Unknown]
